FAERS Safety Report 16044595 (Version 5)
Quarter: 2019Q3

REPORT INFORMATION
  Report Type: Spontaneous
  Country: JP (occurrence: JP)
  Receive Date: 20190306
  Receipt Date: 20190912
  Transmission Date: 20191004
  Serious: Yes (Death, Hospitalization, Other)
  Sender: FDA-Public Use
  Company Number: JP-009507513-1808JPN000839J

PATIENT
  Age: 67 Year
  Sex: Male
  Weight: 65 kg

DRUGS (1)
  1. KEYTRUDA [Suspect]
     Active Substance: PEMBROLIZUMAB
     Indication: NON-SMALL CELL LUNG CANCER
     Dosage: 200 MILLIGRAM, Q3W
     Route: 041
     Dates: start: 20180711, end: 20180711

REACTIONS (5)
  - Interstitial lung disease [Recovered/Resolved]
  - Malignant neoplasm progression [Fatal]
  - Depressed level of consciousness [Unknown]
  - Eye movement disorder [Unknown]
  - Meningitis [Unknown]

NARRATIVE: CASE EVENT DATE: 20180806
